FAERS Safety Report 4332119-8 (Version None)
Quarter: 2004Q1

REPORT INFORMATION
  Report Type: 
  Country: None (occurrence: None)
  Receive Date: 20040330
  Receipt Date: 20040315
  Transmission Date: 20041129
  Serious: No
  Sender: FDA-Public Use
  Company Number: 235880

PATIENT
  Sex: Female

DRUGS (1)
  1. ACTRAPHANE 30 PENFILL (INSULIN HUMAN) SUSPENSION FOR INJECTION, 100IU/ [Suspect]
     Indication: DIABETES MELLITUS

REACTIONS (1)
  - EYE DISORDER [None]
